FAERS Safety Report 8545947-X (Version None)
Quarter: 2012Q3

REPORT INFORMATION
  Report Type: 
  Country: None (occurrence: None)
  Receive Date: 20120727
  Receipt Date: 20111122
  Transmission Date: 20120928
  Serious: No
  Sender: FDA-Public Use
  Company Number: US-ASTRAZENECA-2011SE71293

PATIENT
  Age: 33 Year
  Sex: Male
  Weight: 99.8 kg

DRUGS (2)
  1. ALBUTEROL PRO-AIR [Concomitant]
     Indication: ASTHMA
  2. SEROQUEL XR [Suspect]
     Indication: BIPOLAR DISORDER
     Route: 048
     Dates: start: 20090101

REACTIONS (5)
  - BRONCHITIS [None]
  - WEIGHT INCREASED [None]
  - ASTHMA [None]
  - DRUG DOSE OMISSION [None]
  - INSOMNIA [None]
